FAERS Safety Report 7292600-9 (Version None)
Quarter: 2011Q1

REPORT INFORMATION
  Report Type: 
  Country: None (occurrence: None)
  Receive Date: 20110215
  Receipt Date: 20110203
  Transmission Date: 20110831
  Serious: Yes (Other)
  Sender: FDA-Public Use
  Company Number: US-JNJFOC-20110202968

PATIENT
  Age: 77 Year
  Sex: Female

DRUGS (3)
  1. BYSTOLIC [Concomitant]
     Indication: HYPERTENSION
     Route: 048
  2. MYLANTA SUPREME TASTING CHERRY [Suspect]
     Indication: GALLBLADDER DISORDER
     Dosage: TAKES A ^COUPLE OF GULPS^ AS NEEDED FOR THE GALLBLADDER ATTACKS
     Route: 048
  3. METOPROLOL TARTRATE [Concomitant]
     Indication: HYPERTENSION
     Dosage: 1-2 TABLETS

REACTIONS (4)
  - PRODUCT QUALITY ISSUE [None]
  - HYPERTENSION [None]
  - THERAPEUTIC RESPONSE DECREASED [None]
  - WRONG TECHNIQUE IN DRUG USAGE PROCESS [None]
